FAERS Safety Report 24853197 (Version 1)
Quarter: 2025Q1

REPORT INFORMATION
  Report Type: Spontaneous
  Country: US (occurrence: US)
  Receive Date: 20250117
  Receipt Date: 20250117
  Transmission Date: 20250409
  Serious: No
  Sender: JOHNSON AND JOHNSON
  Company Number: US-JNJFOC-20241285881

PATIENT
  Sex: Female

DRUGS (1)
  1. DARZALEX FASPRO [Suspect]
     Active Substance: DARATUMUMAB\HYALURONIDASE-FIHJ
     Indication: Product used for unknown indication
     Route: 065

REACTIONS (8)
  - Arthralgia [Unknown]
  - Constipation [Unknown]
  - Diarrhoea [Unknown]
  - Peripheral coldness [Unknown]
  - Swelling [Unknown]
  - Hypoaesthesia [Unknown]
  - Insomnia [Unknown]
  - Nausea [Unknown]
